FAERS Safety Report 5093914-3 (Version None)
Quarter: 2006Q3

REPORT INFORMATION
  Report Type: 
  Country: None (occurrence: None)
  Receive Date: 20060829
  Receipt Date: 20060829
  Transmission Date: 20061208
  Serious: Yes (Hospitalization)
  Sender: FDA-Public Use
  Company Number: None

PATIENT
  Age: 81 Year
  Sex: Male
  Weight: 77 kg

DRUGS (4)
  1. AMIFOSTINE [Suspect]
     Indication: NON-SMALL CELL LUNG CANCER
     Dosage: 500MG WEEKLY IVPB
     Route: 050
     Dates: start: 20060607, end: 20060621
  2. OMEPRAZOLE [Suspect]
     Indication: GASTROOESOPHAGEAL REFLUX DISEASE
     Dosage: 40MG QD PO
     Route: 048
     Dates: start: 20060621, end: 20060621
  3. CARBOPLATIN [Concomitant]
  4. PACLITAXEL [Concomitant]

REACTIONS (4)
  - ANGINA PECTORIS [None]
  - MALAISE [None]
  - PYREXIA [None]
  - RASH ERYTHEMATOUS [None]
